FAERS Safety Report 8859972 (Version 1)
Quarter: 2012Q4

REPORT INFORMATION
  Report Type: 
  Country: GB (occurrence: GB)
  Receive Date: 20121025
  Receipt Date: 20121025
  Transmission Date: 20130627
  Serious: Yes (Hospitalization)
  Sender: FDA-Public Use
  Company Number: GB-PFIZER INC-2012265267

PATIENT
  Age: 24 Month
  Sex: Female
  Weight: 14.97 kg

DRUGS (1)
  1. IBUPROFEN [Suspect]
     Indication: ACCIDENTAL EXPOSURE TO PRODUCT
     Dosage: 100 mg /5mL
     Route: 048
     Dates: start: 20120829, end: 20120829

REACTIONS (4)
  - Accidental overdose [Unknown]
  - Accidental exposure to product by child [Unknown]
  - Abdominal discomfort [Recovered/Resolved]
  - Failure of child resistant mechanism for pharmaceutical product [Unknown]
